FAERS Safety Report 14951712 (Version 2)
Quarter: 2018Q2

REPORT INFORMATION
  Report Type: Spontaneous
  Country: US (occurrence: US)
  Receive Date: 20180530
  Receipt Date: 20180601
  Transmission Date: 20180711
  Serious: Yes (Other)
  Sender: FDA-Public Use
  Company Number: US-PFIZER INC-2018217188

PATIENT
  Age: 67 Year
  Sex: Male

DRUGS (11)
  1. FENTANYL CITRATE. [Suspect]
     Active Substance: FENTANYL CITRATE
     Indication: PAIN
     Dosage: UNK (ON HOSPITAL DAY THREE)
  2. OXYCODONE [Suspect]
     Active Substance: OXYCODONE
     Indication: PAIN
     Dosage: UNK
  3. CLONAZEPAM. [Suspect]
     Active Substance: CLONAZEPAM
     Dosage: UNK (ON HOSPITAL DAY THREE, HIS HOME CLONAZEPAM WAS DECREASED)
  4. CITALOPRAM [Suspect]
     Active Substance: CITALOPRAM HYDROBROMIDE
     Dosage: UNK (REMAINED ON HIS HOME DOSES)
  5. ONDANSETRON [Suspect]
     Active Substance: ONDANSETRON
     Dosage: UNK, (REMAINED ON HIS HOME DOSES)
  6. TYLENOL [Suspect]
     Active Substance: ACETAMINOPHEN
     Indication: PYREXIA
     Dosage: UNK
  7. FENTANYL CITRATE. [Suspect]
     Active Substance: FENTANYL CITRATE
     Dosage: UNK (THE NEXT DAY, NECESSITATING EMERGENT SURGERY REQURING ADDITIONAL FENTANYL)
  8. TRAMADOL. [Suspect]
     Active Substance: TRAMADOL
     Dosage: UNK (ON HOSPITAL DAY THREE, PAIN REGIMEN WAS SWITCHED FROM OXYCODONE TO TRAMADOL)
  9. BUPROPION. [Suspect]
     Active Substance: BUPROPION
     Dosage: UNK (REMAINED ON HIS HOME DOSES)
  10. VANCOMYCIN HCL [Suspect]
     Active Substance: VANCOMYCIN HYDROCHLORIDE
     Indication: PYREXIA
     Dosage: UNK, SINGLE
  11. WARFARIN [Suspect]
     Active Substance: WARFARIN
     Dosage: UNK

REACTIONS (1)
  - Serotonin syndrome [Recovered/Resolved]
